FAERS Safety Report 23614588 (Version 1)
Quarter: 2024Q1

REPORT INFORMATION
  Report Type: Other
  Country: JP (occurrence: None)
  Receive Date: 20240311
  Receipt Date: 20240311
  Transmission Date: 20240409
  Serious: Yes (Hospitalization, Other)
  Sender: FDA-Public Use
  Company Number: JP-ROCHE-3466253

PATIENT
  Age: 58 Year
  Sex: Male
  Weight: 67 kg

DRUGS (10)
  1. RITUXAN [Suspect]
     Active Substance: RITUXIMAB
     Indication: Neuromyelitis optica spectrum disorder
     Route: 041
     Dates: start: 20221205, end: 20221205
  2. RITUXAN [Suspect]
     Active Substance: RITUXIMAB
     Route: 041
     Dates: start: 20221212, end: 20221212
  3. RITUXAN [Suspect]
     Active Substance: RITUXIMAB
     Route: 041
     Dates: start: 20221219, end: 20221219
  4. RITUXAN [Suspect]
     Active Substance: RITUXIMAB
     Route: 041
     Dates: start: 20221226, end: 20221226
  5. AZATHIOPRINE [Suspect]
     Active Substance: AZATHIOPRINE
     Indication: Neuromyelitis optica spectrum disorder
     Route: 048
     Dates: start: 20221201
  6. METHYLPREDNISOLONE [Suspect]
     Active Substance: METHYLPREDNISOLONE
     Indication: Neuromyelitis optica spectrum disorder
     Route: 065
  7. PREDNISOLONE [Suspect]
     Active Substance: PREDNISOLONE
     Indication: Neuromyelitis optica spectrum disorder
     Route: 048
     Dates: start: 20221130
  8. ACYCLOVIR [Concomitant]
     Active Substance: ACYCLOVIR
     Indication: Herpes zoster meningomyelitis
  9. CLONAZEPAM [Concomitant]
     Active Substance: CLONAZEPAM
     Indication: Generalised tonic-clonic seizure
  10. LANSOPRAZOLE [Concomitant]
     Active Substance: LANSOPRAZOLE
     Indication: Neuromyelitis optica spectrum disorder
     Route: 048
     Dates: start: 20221130

REACTIONS (3)
  - Pneumonia cytomegaloviral [Recovered/Resolved]
  - Off label use [Unknown]
  - Blood immunoglobulin G decreased [Recovered/Resolved]

NARRATIVE: CASE EVENT DATE: 20230118
